FAERS Safety Report 23244032 (Version 1)
Quarter: 2023Q4

REPORT INFORMATION
  Report Type: Spontaneous
  Country: US (occurrence: US)
  Receive Date: 20231130
  Receipt Date: 20231130
  Transmission Date: 20240110
  Serious: Yes (Hospitalization, Other)
  Sender: FDA-Public Use
  Company Number: US-BRISTOL-MYERS SQUIBB COMPANY-2023-166881

PATIENT
  Age: 65 Year
  Sex: Male
  Weight: 85.73 kg

DRUGS (10)
  1. ABECMA [Suspect]
     Active Substance: IDECABTAGENE VICLEUCEL
     Indication: Plasma cell myeloma
     Dosage: ONCE
     Route: 041
     Dates: start: 20230123
  2. FLUDARABINE [Concomitant]
     Active Substance: FLUDARABINE PHOSPHATE
     Indication: Lymphodepletion
     Dates: start: 20230118, end: 20230120
  3. CYTOXAN [Concomitant]
     Active Substance: CYCLOPHOSPHAMIDE
     Indication: Lymphodepletion
     Dates: start: 20230118, end: 20230120
  4. HUMALOG [Concomitant]
     Active Substance: INSULIN LISPRO
  5. LEVETIRACETAM [Concomitant]
     Active Substance: LEVETIRACETAM
  6. LEVOTHYROXINE [Concomitant]
     Active Substance: LEVOTHYROXINE
  7. PREGABALIN [Concomitant]
     Active Substance: PREGABALIN
  8. PANTOPRAZOLE [Concomitant]
     Active Substance: PANTOPRAZOLE
  9. DULOXETINE [Concomitant]
     Active Substance: DULOXETINE
  10. FLUCONAZOLE [Concomitant]
     Active Substance: FLUCONAZOLE

REACTIONS (5)
  - Viral upper respiratory tract infection [Unknown]
  - Cytokine release syndrome [Unknown]
  - Immune effector cell-associated neurotoxicity syndrome [Recovering/Resolving]
  - Rhinovirus infection [Unknown]
  - Hypogammaglobulinaemia [Unknown]

NARRATIVE: CASE EVENT DATE: 20230201
